FAERS Safety Report 17288478 (Version 1)
Quarter: 2020Q1

REPORT INFORMATION
  Report Type: Report from Study
  Country: None (occurrence: IN)
  Receive Date: 20200120
  Receipt Date: 20200120
  Transmission Date: 20200409
  Serious: Yes (Hospitalization, Other)
  Sender: FDA-Public Use
  Company Number: IN-ABBVIE-20K-078-3238074-00

PATIENT
  Age: 76 Year
  Sex: Female

DRUGS (1)
  1. IMBRUVICA [Suspect]
     Active Substance: IBRUTINIB
     Indication: MANTLE CELL LYMPHOMA
     Dosage: 120^S/4 CAPS/DAY
     Route: 048
     Dates: start: 20190329

REACTIONS (5)
  - Drug ineffective [Unknown]
  - Mouth cyst [Unknown]
  - Vomiting [Unknown]
  - Diarrhoea [Unknown]
  - Escherichia infection [Unknown]

NARRATIVE: CASE EVENT DATE: 20200104
